FAERS Safety Report 7561299-6 (Version None)
Quarter: 2011Q2

REPORT INFORMATION
  Report Type: 
  Country: None (occurrence: None)
  Receive Date: 20110621
  Receipt Date: 20110104
  Transmission Date: 20111010
  Serious: No
  Sender: FDA-Public Use
  Company Number: US-ASTRAZENECA-2010SE54813

PATIENT
  Age: 990 Month
  Sex: Female

DRUGS (3)
  1. SPIRIVA [Concomitant]
  2. PROVENTIL [Concomitant]
  3. PULMICORT FLEXHALER [Suspect]
     Indication: CHRONIC OBSTRUCTIVE PULMONARY DISEASE
     Route: 055

REACTIONS (2)
  - INCORRECT DOSE ADMINISTERED [None]
  - DYSPHONIA [None]
